FAERS Safety Report 12972765 (Version 1)
Quarter: 2016Q4

REPORT INFORMATION
  Report Type: Spontaneous
  Country: US (occurrence: US)
  Receive Date: 20161124
  Receipt Date: 20161124
  Transmission Date: 20170207
  Serious: Yes (Other)
  Sender: FDA-Public Use
  Company Number: US-THE MEDICINES COMPANY-US-MDCO-16-00193

PATIENT

DRUGS (1)
  1. BIVALIRUDIN. [Suspect]
     Active Substance: BIVALIRUDIN
     Indication: PERCUTANEOUS CORONARY INTERVENTION
     Dosage: NOT REPORTED

REACTIONS (2)
  - Coagulation time abnormal [Unknown]
  - Thrombosis [Unknown]
